FAERS Safety Report 6377823-5 (Version None)
Quarter: 2009Q3

REPORT INFORMATION
  Report Type: 
  Country: None (occurrence: None)
  Receive Date: 20090925
  Receipt Date: 20090915
  Transmission Date: 20100115
  Serious: Yes (Hospitalization)
  Sender: FDA-Public Use
  Company Number: US-ELI_LILLY_AND_COMPANY-US200909004609

PATIENT
  Age: 26 Year
  Sex: Male

DRUGS (3)
  1. ZYPREXA [Suspect]
     Dosage: 20 MG, 2/D
     Dates: start: 20090701, end: 20090801
  2. ABILIFY [Concomitant]
     Dosage: 5 MG, UNK
  3. CELEXA [Concomitant]
     Dosage: 50 MG, UNK

REACTIONS (2)
  - HOSPITALISATION [None]
  - OVERDOSE [None]
